FAERS Safety Report 6644215-0 (Version None)
Quarter: 2010Q1

REPORT INFORMATION
  Report Type: 
  Country: None (occurrence: None)
  Receive Date: 20100319
  Receipt Date: 20100319
  Transmission Date: 20100710
  Serious: Yes (Disabling)
  Sender: FDA-Public Use
  Company Number: None

PATIENT
  Sex: Female
  Weight: 58.9676 kg

DRUGS (1)
  1. FOSAMAX [Suspect]

REACTIONS (6)
  - FALL [None]
  - FEMUR FRACTURE [None]
  - HEADACHE [None]
  - JAW DISORDER [None]
  - JAW FRACTURE [None]
  - OSTEOMYELITIS [None]
